FAERS Safety Report 9174098 (Version 3)
Quarter: 2013Q3

REPORT INFORMATION
  Report Type: Spontaneous
  Country: US (occurrence: None)
  Receive Date: 20130314
  Receipt Date: 20130722
  Transmission Date: 20140515
  Serious: Yes (Hospitalization)
  Sender: FDA-Public Use
  Company Number: ACO_34778_2013

PATIENT
  Age: 59 Year
  Sex: Female
  Weight: 59 kg

DRUGS (4)
  1. AMPYRA [Suspect]
     Indication: MULTIPLE SCLEROSIS
     Route: 048
     Dates: start: 2012, end: 201302
  2. HYDROCHLOROTHIAZIDE (HYDROCHLOROTHIAZE) [Concomitant]
  3. PAXIL (PAROXETINE HYDROCHLORIDE) [Concomitant]
  4. AVONEX (INTERFERON BETA-1A [Concomitant]

REACTIONS (1)
  - Convulsion [None]
